FAERS Safety Report 22742499 (Version 5)
Quarter: 2023Q4

REPORT INFORMATION
  Report Type: Report from Study
  Country: US (occurrence: US)
  Receive Date: 20230724
  Receipt Date: 20231017
  Transmission Date: 20240109
  Serious: No
  Sender: FDA-Public Use
  Company Number: US-002147023-NVSC2023US162587

PATIENT
  Sex: Male

DRUGS (1)
  1. ENTRESTO [Suspect]
     Active Substance: SACUBITRIL\VALSARTAN
     Indication: Product used for unknown indication
     Dosage: 1 DOSAGE FORM, BID
     Route: 065
     Dates: start: 202306

REACTIONS (10)
  - Rhinorrhoea [Unknown]
  - Nasopharyngitis [Unknown]
  - Chest discomfort [Unknown]
  - Weight increased [Unknown]
  - Temperature intolerance [Unknown]
  - Fluid retention [Unknown]
  - Cough [Unknown]
  - Hypersensitivity [Unknown]
  - COVID-19 [Recovering/Resolving]
  - Back pain [Unknown]
